FAERS Safety Report 5404338-0 (Version None)
Quarter: 2007Q3

REPORT INFORMATION
  Report Type: 
  Country: None (occurrence: None)
  Receive Date: 20070711
  Receipt Date: 20070116
  Transmission Date: 20080115
  Serious: No
  Sender: FDA-Public Use
  Company Number: 243789

PATIENT
  Age: 55 Year
  Sex: Female
  Weight: 52.2 kg

DRUGS (5)
  1. ACTIVELLA [Suspect]
     Indication: MENOPAUSAL SYMPTOMS
     Dosage: ORAL
     Route: 048
     Dates: start: 20011003, end: 20021001
  2. PREMPRO [Suspect]
     Indication: MENOPAUSAL SYMPTOMS
     Dosage: 0.625/205 MG, ORAL
     Route: 048
     Dates: start: 19980612, end: 20010904
  3. ASPIRIN [Concomitant]
  4. MULTIVITAMINS PLUS IRON (FERROUS SULFATE, VITAMINS NOS) [Concomitant]
  5. CALCIUM (CALCIUM) [Concomitant]

REACTIONS (1)
  - BREAST CANCER IN SITU [None]
